FAERS Safety Report 19835342 (Version 1)
Quarter: 2021Q3

REPORT INFORMATION
  Report Type: Spontaneous
  Country: PT (occurrence: PT)
  Receive Date: 20210915
  Receipt Date: 20210915
  Transmission Date: 20211014
  Serious: Yes (Hospitalization, Other)
  Sender: FDA-Public Use
  Company Number: PT-ACCORD-238551

PATIENT
  Age: 27 Year
  Sex: Female

DRUGS (3)
  1. MERCAPTOPURINE/MERCAPTOPURINE ANHYDROUS [Suspect]
     Active Substance: MERCAPTOPURINE
     Indication: CROHN^S DISEASE
     Dosage: IN COMBINATION WITH INFLXIMAB
     Route: 065
  2. METHOTREXATE. [Suspect]
     Active Substance: METHOTREXATE
     Indication: CROHN^S DISEASE
     Route: 065
  3. INFLIXIMAB [Suspect]
     Active Substance: INFLIXIMAB
     Indication: PRODUCT USED FOR UNKNOWN INDICATION
     Dosage: 10 MG/KG, THE INTERVAL TO 6/6 WEEKS
     Route: 042
     Dates: start: 2015

REACTIONS (11)
  - Purulent discharge [Unknown]
  - Pyrexia [Unknown]
  - Overdose [Unknown]
  - Mucosal ulceration [Unknown]
  - Pseudopolyp [Unknown]
  - Perirectal abscess [Unknown]
  - Proctalgia [Unknown]
  - Crohn^s disease [Recovered/Resolved]
  - Anal abscess [Unknown]
  - Oedema [Unknown]
  - Malnutrition [Unknown]

NARRATIVE: CASE EVENT DATE: 201510
